FAERS Safety Report 8527727 (Version 2)
Quarter: 2013Q1

REPORT INFORMATION
  Report Type: Report from Study
  Country: US (occurrence: US)
  Receive Date: 20120424
  Receipt Date: 20130131
  Transmission Date: 20140127
  Serious: Yes (Other)
  Sender: FDA-Public Use
  Company Number: US-ACTELION-A-US2010-36490

PATIENT
  Age: 83 Year
  Sex: Male

DRUGS (23)
  1. TRACLEER [Suspect]
     Indication: PULMONARY ARTERIAL HYPERTENSION
     Dosage: 125 MG, BID
     Route: 048
     Dates: start: 20100427
  2. PLAVIX [Concomitant]
  3. PREVACID [Concomitant]
  4. ADVAIR [Concomitant]
  5. ATROVENT [Concomitant]
  6. GLUCOSAMINE PLUS [Concomitant]
  7. HYTRIN [Concomitant]
  8. K-DUR [Concomitant]
  9. NASONEX [Concomitant]
  10. STARLIX [Concomitant]
  11. SYNTHROID [Concomitant]
  12. THERAGRAN [Concomitant]
  13. ULTRACET [Concomitant]
  14. VITAMIN C [Concomitant]
  15. CALCIUM CITRATE [Concomitant]
  16. MOBIC [Concomitant]
  17. LASIX [Concomitant]
  18. ALBUTEROL [Concomitant]
  19. ALLEGRA [Concomitant]
  20. ASPIRIN [Concomitant]
  21. CRESTOR [Concomitant]
  22. IMDUR [Concomitant]
  23. AVELOX [Concomitant]

REACTIONS (6)
  - Pain in extremity [Not Recovered/Not Resolved]
  - Sinusitis [Unknown]
  - Pneumonia [Unknown]
  - Oedema peripheral [Recovered/Resolved]
  - Nasal congestion [Unknown]
  - Nasopharyngitis [Unknown]
